FAERS Safety Report 12493331 (Version 3)
Quarter: 2016Q3

REPORT INFORMATION
  Report Type: Spontaneous
  Country: NO (occurrence: NO)
  Receive Date: 20160623
  Receipt Date: 20160822
  Transmission Date: 20161109
  Serious: Yes (Hospitalization, Other)
  Sender: FDA-Public Use
  Company Number: NO-PFIZER INC-2016271896

PATIENT
  Age: 29 Year
  Sex: Male

DRUGS (1)
  1. ZELDOX [Suspect]
     Active Substance: ZIPRASIDONE
     Indication: SCHIZOPHRENIA
     Dosage: 80 MG, 2X/DAY
     Dates: start: 2013

REACTIONS (8)
  - Memory impairment [Not Recovered/Not Resolved]
  - Nausea [Not Recovered/Not Resolved]
  - Salivary hypersecretion [Not Recovered/Not Resolved]
  - Parkinsonism [Unknown]
  - Decreased appetite [Not Recovered/Not Resolved]
  - Disturbance in attention [Not Recovered/Not Resolved]
  - Vomiting [Not Recovered/Not Resolved]
  - Headache [Not Recovered/Not Resolved]

NARRATIVE: CASE EVENT DATE: 20160320
